FAERS Safety Report 11351221 (Version 1)
Quarter: 2015Q3

REPORT INFORMATION
  Report Type: Spontaneous
  Country: US (occurrence: US)
  Receive Date: 20150807
  Receipt Date: 20150807
  Transmission Date: 20151125
  Serious: No
  Sender: FDA-Public Use
  Company Number: US-PFIZER INC-2015262852

PATIENT
  Age: 12 Year
  Sex: Male
  Weight: 27.21 kg

DRUGS (1)
  1. GENOTROPIN [Suspect]
     Active Substance: SOMATROPIN
     Indication: DWARFISM
     Dosage: 0.6 MG, DAILY
     Route: 058
     Dates: start: 20150427

REACTIONS (1)
  - Skin discolouration [Unknown]
